FAERS Safety Report 14566995 (Version 1)
Quarter: 2018Q1

REPORT INFORMATION
  Report Type: Spontaneous
  Country: US (occurrence: US)
  Receive Date: 20180219
  Receipt Date: 20180219
  Transmission Date: 20180509
  Serious: Yes (Life-Threatening, Hospitalization, Disabling, Other)
  Sender: FDA-Public Use
  Company Number: None

PATIENT
  Age: 50 Year
  Sex: Female
  Weight: 87.75 kg

DRUGS (13)
  1. DULOXETINE. [Concomitant]
     Active Substance: DULOXETINE
  2. LORAZEPAM. [Concomitant]
     Active Substance: LORAZEPAM
  3. TRIFLUOPERAZINE [Concomitant]
     Active Substance: TRIFLUOPERAZINE\TRIFLUOPERAZINE HYDROCHLORIDE
  4. QUETIAPINE FUMARATE. [Concomitant]
     Active Substance: QUETIAPINE FUMARATE
  5. GABAPENTIN. [Concomitant]
     Active Substance: GABAPENTIN
  6. THYROID COMPLEX VITAMIN SUPPLEMENTS [Concomitant]
  7. ATORVASTATIN [Concomitant]
     Active Substance: ATORVASTATIN
  8. RANITIDINE. [Concomitant]
     Active Substance: RANITIDINE
  9. KENALOG [Suspect]
     Active Substance: TRIAMCINOLONE ACETONIDE
     Indication: BACK PAIN
     Route: 008
  10. UNITHROID [Concomitant]
     Active Substance: LEVOTHYROXINE SODIUM
  11. KENALOG [Suspect]
     Active Substance: TRIAMCINOLONE ACETONIDE
     Indication: NECK PAIN
     Route: 008
  12. METFORMIN [Concomitant]
     Active Substance: METFORMIN HYDROCHLORIDE
  13. TRAZODONE [Concomitant]
     Active Substance: TRAZODONE HYDROCHLORIDE

REACTIONS (11)
  - Pain [None]
  - Wound secretion [None]
  - Extradural haematoma [None]
  - Staphylococcal infection [None]
  - Swelling [None]
  - Muscle tightness [None]
  - Paraesthesia [None]
  - Spinal cord compression [None]
  - Paralysis [None]
  - Neurogenic bladder [None]
  - Headache [None]

NARRATIVE: CASE EVENT DATE: 20160105
